FAERS Safety Report 7506820-9 (Version None)
Quarter: 2011Q2

REPORT INFORMATION
  Report Type: 
  Country: None (occurrence: None)
  Receive Date: 20110526
  Receipt Date: 20110517
  Transmission Date: 20111010
  Serious: Yes (Other)
  Sender: FDA-Public Use
  Company Number: A0929025A

PATIENT
  Age: 54 Year
  Sex: Female

DRUGS (1)
  1. PAXIL CR [Suspect]
     Dates: start: 20020101

REACTIONS (6)
  - HEADACHE [None]
  - ANXIETY [None]
  - ANGER [None]
  - DECREASED APPETITE [None]
  - UTERINE CANCER [None]
  - INSOMNIA [None]
